FAERS Safety Report 6237699-3 (Version None)
Quarter: 2009Q2

REPORT INFORMATION
  Report Type: 
  Country: None (occurrence: None)
  Receive Date: 20090619
  Receipt Date: 20090619
  Transmission Date: 20091009
  Serious: Yes (Life-Threatening)
  Sender: FDA-Public Use
  Company Number: BR-B.I. PHARMACEUTICALS,INC./RIDGEFIELD-2009-BR-00606BR

PATIENT
  Age: 70 Year
  Sex: Female

DRUGS (1)
  1. SPIRIVA [Suspect]
     Dosage: NR

REACTIONS (3)
  - ACUTE RESPIRATORY DISTRESS SYNDROME [None]
  - ANAPHYLACTIC SHOCK [None]
  - DYSPNOEA [None]
